FAERS Safety Report 11682041 (Version 1)
Quarter: 2015Q4

REPORT INFORMATION
  Report Type: Spontaneous
  Country: US (occurrence: None)
  Receive Date: 20151028
  Receipt Date: 20151028
  Transmission Date: 20160304
  Serious: No
  Sender: FDA-Public Use
  Company Number: None

PATIENT
  Age: 48 Year
  Sex: Female

DRUGS (6)
  1. OCUTIVE [Concomitant]
  2. TRAMADOL. [Concomitant]
     Active Substance: TRAMADOL
  3. VITAMIN B12 [Concomitant]
     Active Substance: CYANOCOBALAMIN
  4. HYDROCOD/IBUPROFEN [Concomitant]
  5. SULFAZINE [Concomitant]
     Active Substance: SULFASALAZINE
  6. ENBREL [Suspect]
     Active Substance: ETANERCEPT
     Indication: RHEUMATOID ARTHRITIS
     Dosage: UNDER THE SKIN
     Dates: start: 20151008, end: 20151008

REACTIONS (4)
  - Chills [None]
  - Pruritus [None]
  - Fatigue [None]
  - Hypersensitivity [None]

NARRATIVE: CASE EVENT DATE: 20151008
